FAERS Safety Report 13945383 (Version 2)
Quarter: 2017Q4

REPORT INFORMATION
  Report Type: Report from Study
  Country: CO (occurrence: CO)
  Receive Date: 20170907
  Receipt Date: 20171006
  Transmission Date: 20180320
  Serious: Yes (Hospitalization, Other)
  Sender: FDA-Public Use
  Company Number: PHHY2017CO111199

PATIENT
  Sex: Male
  Weight: 54 kg

DRUGS (5)
  1. CALCIUM CARBONATE. [Concomitant]
     Active Substance: CALCIUM CARBONATE
     Indication: PRODUCT USED FOR UNKNOWN INDICATION
     Route: 065
  2. VOTRIENT [Suspect]
     Active Substance: PAZOPANIB HYDROCHLORIDE
     Indication: SOFT TISSUE SARCOMA
     Dosage: 200 MG, QID
     Route: 048
     Dates: start: 20170209, end: 20170913
  3. CALCIUM [Suspect]
     Active Substance: CALCIUM
     Indication: PRODUCT USED FOR UNKNOWN INDICATION
     Dosage: UNK
     Route: 065
  4. DIHYDROCODEINE [Suspect]
     Active Substance: DIHYDROCODEINE
     Indication: PRODUCT USED FOR UNKNOWN INDICATION
     Dosage: UNK
     Route: 065
     Dates: start: 20170713
  5. ASCORBIC ACID. [Concomitant]
     Active Substance: ASCORBIC ACID
     Indication: PRODUCT USED FOR UNKNOWN INDICATION
     Route: 065

REACTIONS (13)
  - Malignant neoplasm progression [Unknown]
  - Abdominal pain upper [Unknown]
  - Cough [Unknown]
  - Back pain [Unknown]
  - Eating disorder [Unknown]
  - Vomiting [Unknown]
  - Reflux gastritis [Unknown]
  - Soft tissue sarcoma [Unknown]
  - Metastases to lung [Unknown]
  - Pleural effusion [Unknown]
  - Inflammation [Unknown]
  - Gastritis [Unknown]
  - Influenza [Unknown]
